FAERS Safety Report 24746943 (Version 2)
Quarter: 2024Q4

REPORT INFORMATION
  Report Type: Spontaneous
  Country: US (occurrence: US)
  Receive Date: 20241218
  Receipt Date: 20241224
  Transmission Date: 20250115
  Serious: Yes (Other)
  Sender: ASTELLAS
  Company Number: US-ASTELLAS-2024-AER-025516

PATIENT
  Sex: Male

DRUGS (3)
  1. XTANDI [Suspect]
     Active Substance: ENZALUTAMIDE
     Indication: Prostate cancer metastatic
     Route: 048
     Dates: start: 202210, end: 202407
  2. XTANDI [Suspect]
     Active Substance: ENZALUTAMIDE
     Indication: Metastases to bone
  3. XTANDI [Suspect]
     Active Substance: ENZALUTAMIDE
     Indication: Metastases to lymph nodes

REACTIONS (2)
  - Neuropathy peripheral [Recovering/Resolving]
  - Decreased activity [Recovering/Resolving]
